FAERS Safety Report 7406453-9 (Version None)
Quarter: 2011Q2

REPORT INFORMATION
  Report Type: 
  Country: None (occurrence: None)
  Receive Date: 20110406
  Receipt Date: 20110406
  Transmission Date: 20111010
  Serious: Yes (Life-Threatening, Hospitalization)
  Sender: FDA-Public Use
  Company Number: None

PATIENT
  Age: 62 Year
  Sex: Female
  Weight: 52.1637 kg

DRUGS (1)
  1. ALEVE [Suspect]
     Indication: HEADACHE
     Dosage: 2 TABLETS ONCE PO
     Route: 048
     Dates: start: 20101022, end: 20101022

REACTIONS (7)
  - CIRCULATORY COLLAPSE [None]
  - CONFUSIONAL STATE [None]
  - UNRESPONSIVE TO STIMULI [None]
  - DYSARTHRIA [None]
  - MALAISE [None]
  - ANAPHYLACTIC SHOCK [None]
  - HYPOVENTILATION [None]
